FAERS Safety Report 5622420-X (Version None)
Quarter: 2008Q1

REPORT INFORMATION
  Report Type: 
  Country: None (occurrence: None)
  Receive Date: 20080114
  Receipt Date: 20070812
  Transmission Date: 20080703
  Serious: Yes (Hospitalization)
  Sender: FDA-Public Use
  Company Number: A03200705117

PATIENT
  Age: 58 Year
  Sex: Female
  Weight: 231 kg

DRUGS (6)
  1. PLAVIX [Suspect]
     Indication: ANTICOAGULANT THERAPY
     Dosage: 75 MG QD - ORAL
     Route: 048
     Dates: start: 20030501, end: 20060801
  2. VENLAFAXINE HYDROCHLORIDE [Concomitant]
  3. CAPTOPRIL [Concomitant]
  4. TRAZODONE HCL [Concomitant]
  5. LANSOPRAZOLE [Concomitant]
  6. OXYGEN [Concomitant]

REACTIONS (4)
  - RASH [None]
  - RENAL FAILURE [None]
  - SKIN HAEMORRHAGE [None]
  - VASCULITIS [None]
